FAERS Safety Report 5919662-2 (Version None)
Quarter: 2008Q3

REPORT INFORMATION
  Report Type: 
  Country: None (occurrence: None)
  Receive Date: 20080909
  Receipt Date: 20080604
  Transmission Date: 20090109
  Serious: Yes (Hospitalization)
  Sender: FDA-Public Use
  Company Number: 163-20785-08051628

PATIENT
  Age: 59 Year
  Sex: Female
  Weight: 71.9405 kg

DRUGS (22)
  1. THALOMID [Suspect]
     Indication: MULTIPLE MYELOMA
     Dosage: 50 MG, QHS, ORAL ; 200 MG, DAILY, ORAL
     Route: 048
     Dates: start: 20050524, end: 20080430
  2. THALOMID [Suspect]
     Indication: MULTIPLE MYELOMA
     Dosage: 50 MG, QHS, ORAL ; 200 MG, DAILY, ORAL
     Route: 048
     Dates: start: 20050524
  3. DEXAMETHASONE TAB [Suspect]
     Indication: MULTIPLE MYELOMA
     Dosage: 12 MG, DAYS 1-4 EVERY 28 DAYS ; 40 MG
     Dates: end: 20080428
  4. DEXAMETHASONE TAB [Suspect]
     Indication: MULTIPLE MYELOMA
     Dosage: 12 MG, DAYS 1-4 EVERY 28 DAYS ; 40 MG
     Dates: start: 20050524
  5. OXYCODONE HYDROCHLORIDE (OXYCODONE HYDROCHLORIDE) (5 MILLIGRAM, CAPSUL [Concomitant]
  6. PRILOSEC (OMEPRAZOLE) (20 MILLIGRAM, TABLETS) [Concomitant]
  7. MULTIVITAMINS (MULTIVITAMINS) (TABLETS) [Concomitant]
  8. LORAZEPAM (LORAZEPAM) (1 MILLIGRAM, TABLETS) [Concomitant]
  9. AREDIA (PAMIDRONATE DISODIUM) (90 MILLIGRAM, SOLUTION) [Concomitant]
  10. ATENOLOL (ATENOLOL) (25 MILLIGRAM, TABLETS) [Concomitant]
  11. ACYCLOVIR (ACICLOVIR) (200 MILLIGRAM, CAPSULES) [Concomitant]
  12. LEVAQUIN (LEVOFLOXACIN) (250 MILLIGRAM, TABLETS) [Concomitant]
  13. MS CONTIN (MORPHINE SULFATE) (30 MILLIGRAM, TABLETS) [Concomitant]
  14. NEURONTIN (GABAPENTIN) (100 MILLIGRAM, CAPSULES) [Concomitant]
  15. ACTIQ [Concomitant]
  16. VEG LAXATIVE (LAXATIVES) [Concomitant]
  17. ASPIRINE (ACETYLSALICYLIC ACID) (CHEWABLE TABLETS) [Concomitant]
  18. TAMIFLU (OSELTAMIVIR) (75 MILLIGRAM, CAPSULES) [Concomitant]
  19. ENALAPRIL MALEATE [Concomitant]
  20. NYSTATIN (NYSTATIN) (SUSPENSION) [Concomitant]
  21. FLUCONAZOLE [Concomitant]
  22. ALBUTEROL [Concomitant]

REACTIONS (2)
  - PNEUMOCOCCAL SEPSIS [None]
  - PNEUMONIA [None]
